FAERS Safety Report 4512867-7 (Version None)
Quarter: 2004Q4

REPORT INFORMATION
  Report Type: 
  Country: None (occurrence: None)
  Receive Date: 20041130
  Receipt Date: 20041029
  Transmission Date: 20050328
  Serious: Yes (Hospitalization)
  Sender: FDA-Public Use
  Company Number: FR-ABBOTT-04P-056-0279415-00

PATIENT
  Age: 13 Year
  Sex: Female

DRUGS (11)
  1. DEPAKENE [Suspect]
     Indication: EPILEPSY
     Route: 048
     Dates: end: 20040910
  2. BACLOFEN [Suspect]
     Indication: NERVOUS SYSTEM DISORDER
     Route: 048
     Dates: start: 20000101, end: 20040910
  3. ALIMEMAZINE TARTRATE [Suspect]
     Indication: SLEEP DISORDER
     Dosage: .05% SYRUP
     Route: 048
     Dates: start: 20030101, end: 20040910
  4. SMECTITE [Suspect]
     Indication: DRUG USE FOR UNKNOWN INDICATION
     Dosage: POWDER
     Route: 048
     Dates: end: 20040901
  5. OMEPRAZOLE [Concomitant]
     Indication: OESOPHAGEAL DISORDER
     Route: 048
     Dates: start: 20010101, end: 20040910
  6. OMEPRAZOLE [Concomitant]
     Route: 042
     Dates: start: 20040910
  7. PARACETAMOL [Concomitant]
     Indication: BONE PAIN
     Route: 048
     Dates: start: 20040301, end: 20040910
  8. PARACETAMOL [Concomitant]
     Route: 042
     Dates: start: 20040901, end: 20040901
  9. PARACETAMOL [Concomitant]
     Route: 048
     Dates: start: 20040901
  10. LACTULOSE [Concomitant]
     Indication: DRUG USE FOR UNKNOWN INDICATION
     Route: 048
  11. PHENOBARBITAL TAB [Concomitant]
     Indication: EPILEPSY
     Dates: start: 20040910

REACTIONS (2)
  - GENERAL PHYSICAL HEALTH DETERIORATION [None]
  - PANCREATITIS [None]
